FAERS Safety Report 20474521 (Version 1)
Quarter: 2022Q1

REPORT INFORMATION
  Report Type: Report from Study
  Country: US (occurrence: US)
  Receive Date: 20220215
  Receipt Date: 20220215
  Transmission Date: 20220424
  Serious: No
  Sender: FDA-Public Use
  Company Number: US-BEH-2022142176

PATIENT
  Age: 72 Year
  Sex: Male

DRUGS (1)
  1. HIZENTRA [Suspect]
     Active Substance: HUMAN IMMUNOGLOBULIN G
     Indication: Primary immunodeficiency syndrome
     Dosage: 5 GRAM, BIW
     Route: 058
     Dates: start: 20220208

REACTIONS (10)
  - Infusion site erythema [Recovering/Resolving]
  - Infusion site pain [Recovering/Resolving]
  - Infusion site swelling [Recovering/Resolving]
  - Infusion site pain [Recovering/Resolving]
  - Infusion site haemorrhage [Recovering/Resolving]
  - Infusion site bruising [Recovering/Resolving]
  - Chills [Recovering/Resolving]
  - Chills [Recovering/Resolving]
  - No adverse event [Recovering/Resolving]
  - Wrong technique in device usage process [Recovering/Resolving]

NARRATIVE: CASE EVENT DATE: 20220201
